FAERS Safety Report 8563855-5 (Version None)
Quarter: 2012Q3

REPORT INFORMATION
  Report Type: 
  Country: None (occurrence: None)
  Receive Date: 20120727
  Receipt Date: 20120727
  Transmission Date: 20120928
  Serious: No
  Sender: FDA-Public Use
  Company Number: None

PATIENT
  Age: 54 Year
  Sex: Female
  Weight: 98.8842 kg

DRUGS (1)
  1. URSODIOL [Suspect]
     Indication: BILIARY CIRRHOSIS PRIMARY
     Dosage: 2 CAPSULES 3X DAILY PO
     Route: 048
     Dates: start: 20120714, end: 20120718

REACTIONS (3)
  - NAUSEA [None]
  - LIVER FUNCTION TEST ABNORMAL [None]
  - PRURITUS [None]
